FAERS Safety Report 22310311 (Version 2)
Quarter: 2023Q2

REPORT INFORMATION
  Report Type: Spontaneous
  Country: US (occurrence: US)
  Receive Date: 20230511
  Receipt Date: 20230517
  Transmission Date: 20230722
  Serious: Yes (Other)
  Sender: FDA-Public Use
  Company Number: US-UNITED THERAPEUTICS-UNT-2023-012829

PATIENT
  Age: 69 Year
  Sex: Female
  Weight: 45.351 kg

DRUGS (7)
  1. TYVASO [Suspect]
     Active Substance: TREPROSTINIL
     Indication: Pulmonary arterial hypertension
     Dosage: 18 ?G, QID
  2. TYVASO [Suspect]
     Active Substance: TREPROSTINIL
     Dosage: UNK
     Dates: start: 20230425
  3. ZOFRAN [Suspect]
     Active Substance: ONDANSETRON HYDROCHLORIDE
     Indication: Nausea
     Dosage: UNK
     Route: 065
  4. PHENERGAN [Suspect]
     Active Substance: PROMETHAZINE HYDROCHLORIDE
     Indication: Nausea
     Dosage: UNK
     Route: 065
  5. ELIQUIS [Concomitant]
     Active Substance: APIXABAN
     Indication: Product used for unknown indication
     Dosage: UNK
     Route: 065
  6. ALBUTEROL [Concomitant]
     Active Substance: ALBUTEROL
     Indication: Product used for unknown indication
     Dosage: UNK
     Route: 065
  7. DUONEB [Concomitant]
     Active Substance: ALBUTEROL SULFATE\IPRATROPIUM BROMIDE
     Indication: Product used for unknown indication
     Dosage: UNK
     Route: 065

REACTIONS (23)
  - Oxygen saturation decreased [Unknown]
  - Cough [Unknown]
  - Feeling cold [Unknown]
  - Nausea [Unknown]
  - Fatigue [Unknown]
  - Throat irritation [Unknown]
  - Condition aggravated [Unknown]
  - Asthenia [Unknown]
  - Tremor [Unknown]
  - Wheezing [Unknown]
  - Dizziness [Unknown]
  - Oropharyngeal pain [Unknown]
  - Painful respiration [Unknown]
  - Feeling abnormal [Unknown]
  - Dyspnoea [Unknown]
  - Weight decreased [Unknown]
  - Migraine [Unknown]
  - Chills [Unknown]
  - Pain [Unknown]
  - Insomnia [Unknown]
  - Productive cough [Unknown]
  - Haemoptysis [Unknown]
  - Therapy non-responder [Unknown]

NARRATIVE: CASE EVENT DATE: 20230503
